FAERS Safety Report 14708405 (Version 1)
Quarter: 2018Q2

REPORT INFORMATION
  Report Type: Report from Study
  Country: US (occurrence: US)
  Receive Date: 20180403
  Receipt Date: 20180403
  Transmission Date: 20180711
  Serious: Yes (Other)
  Sender: FDA-Public Use
  Company Number: US-ELI_LILLY_AND_COMPANY-US201803011343

PATIENT
  Age: 46 Year
  Sex: Male

DRUGS (5)
  1. TERIPARATIDE [Suspect]
     Active Substance: TERIPARATIDE
     Indication: PRODUCT USED FOR UNKNOWN INDICATION
     Dosage: UNK, UNKNOWN
     Route: 065
     Dates: start: 20171124
  2. NEURONTIN [Concomitant]
     Active Substance: GABAPENTIN
     Indication: PRODUCT USED FOR UNKNOWN INDICATION
  3. CELEBREX [Concomitant]
     Active Substance: CELECOXIB
     Indication: PRODUCT USED FOR UNKNOWN INDICATION
  4. ZANTREX-3 [Concomitant]
     Indication: PRODUCT USED FOR UNKNOWN INDICATION
  5. DEMEROL [Concomitant]
     Active Substance: MEPERIDINE HYDROCHLORIDE
     Indication: PRODUCT USED FOR UNKNOWN INDICATION

REACTIONS (17)
  - Asthenia [Unknown]
  - Device dislocation [Unknown]
  - Diarrhoea [Unknown]
  - Musculoskeletal discomfort [Unknown]
  - Dizziness [Unknown]
  - Myasthenia gravis [Recovering/Resolving]
  - Weight increased [Unknown]
  - Cartilage injury [Unknown]
  - Muscle disorder [Unknown]
  - Muscular weakness [Unknown]
  - Nerve injury [Unknown]
  - Body height decreased [Unknown]
  - Needle track marks [Unknown]
  - Limb discomfort [Unknown]
  - Feeling abnormal [Unknown]
  - Mobility decreased [Unknown]
  - Thrombosis [Unknown]

NARRATIVE: CASE EVENT DATE: 201712
